FAERS Safety Report 4761758-5 (Version None)
Quarter: 2005Q3

REPORT INFORMATION
  Report Type: 
  Country: None (occurrence: None)
  Receive Date: 20050906
  Receipt Date: 20050824
  Transmission Date: 20060218
  Serious: Yes (Other)
  Sender: FDA-Public Use
  Company Number: US-BRISTOL-MYERS SQUIBB COMPANY-13088786

PATIENT
  Age: 7 Year
  Sex: Female
  Weight: 17 kg

DRUGS (3)
  1. ATAZANAVIR [Suspect]
     Dosage: 300 MG/D, THEN 500 MG/D ON 1/25/05,700 MG/D ON 29-MAR-2005 AND 900/D MG MAY-2005 TEMP. D/C'D 7/28/05
     Route: 048
     Dates: start: 20041221
  2. CO-TRIMOXAZOLE [Concomitant]
  3. ZIDOVUDINE [Concomitant]
     Dosage: DOSAGE INCREASED TO 320 MG ON 25-JAN-2005.
     Dates: start: 20041229

REACTIONS (2)
  - ELECTROCARDIOGRAM QT CORRECTED INTERVAL PROLONGED [None]
  - SINUS TACHYCARDIA [None]
